FAERS Safety Report 8302637-6 (Version None)
Quarter: 2012Q2

REPORT INFORMATION
  Report Type: 
  Country: None (occurrence: None)
  Receive Date: 20120420
  Receipt Date: 20120411
  Transmission Date: 20120825
  Serious: Yes (Other)
  Sender: FDA-Public Use
  Company Number: US-ASTRAZENECA-2011SE54727

PATIENT
  Age: 80 Year
  Sex: Male

DRUGS (1)
  1. MERREM [Suspect]
     Route: 042

REACTIONS (2)
  - BEDRIDDEN [None]
  - INFECTION [None]
